FAERS Safety Report 13583403 (Version 7)
Quarter: 2018Q4

REPORT INFORMATION
  Report Type: Report from Study
  Country: FR (occurrence: FR)
  Receive Date: 20170526
  Receipt Date: 20181221
  Transmission Date: 20190204
  Serious: Yes (Death, Other)
  Sender: FDA-Public Use
  Company Number: FR-BRISTOL-MYERS SQUIBB COMPANY-BMS-2017-044019

PATIENT
  Age: 78 Year
  Sex: Male

DRUGS (1)
  1. NIVOLUMAB [Suspect]
     Active Substance: NIVOLUMAB
     Indication: LUNG NEOPLASM MALIGNANT
     Dosage: 260 MG, UNK
     Route: 042
     Dates: start: 20170308, end: 20170322

REACTIONS (5)
  - Malignant neoplasm progression [Fatal]
  - Pleural effusion [Unknown]
  - Respiratory tract infection [Recovered/Resolved]
  - Lung infection [Unknown]
  - Ischaemic stroke [Unknown]

NARRATIVE: CASE EVENT DATE: 20170314
